FAERS Safety Report 17145896 (Version 4)
Quarter: 2023Q1

REPORT INFORMATION
  Report Type: Spontaneous
  Country: US (occurrence: US)
  Receive Date: 20191212
  Receipt Date: 20230209
  Transmission Date: 20230417
  Serious: No
  Sender: FDA-Public Use
  Company Number: US-BIOGEN-2019BI00816803

PATIENT
  Age: 43 Year
  Sex: Female

DRUGS (13)
  1. AVONEX [Suspect]
     Active Substance: INTERFERON BETA-1A
     Indication: Multiple sclerosis
     Route: 050
     Dates: start: 20091210
  2. AVONEX [Suspect]
     Active Substance: INTERFERON BETA-1A
  3. AVONEX [Suspect]
     Active Substance: INTERFERON BETA-1A
  4. AVONEX [Suspect]
     Active Substance: INTERFERON BETA-1A
  5. AVONEX [Suspect]
     Active Substance: INTERFERON BETA-1A
  6. AVONEX [Suspect]
     Active Substance: INTERFERON BETA-1A
  7. AVONEX [Suspect]
     Active Substance: INTERFERON BETA-1A
  8. AVONEX [Suspect]
     Active Substance: INTERFERON BETA-1A
  9. AVONEX [Suspect]
     Active Substance: INTERFERON BETA-1A
  10. AVONEX [Suspect]
     Active Substance: INTERFERON BETA-1A
  11. AVONEX [Suspect]
     Active Substance: INTERFERON BETA-1A
  12. AVONEX [Suspect]
     Active Substance: INTERFERON BETA-1A
  13. AVONEX [Suspect]
     Active Substance: INTERFERON BETA-1A

REACTIONS (4)
  - Nasopharyngitis [Not Recovered/Not Resolved]
  - Multiple allergies [Not Recovered/Not Resolved]
  - Mental impairment [Not Recovered/Not Resolved]
  - Headache [Not Recovered/Not Resolved]

NARRATIVE: CASE EVENT DATE: 20191210
